FAERS Safety Report 16161912 (Version 2)
Quarter: 2019Q2

REPORT INFORMATION
  Report Type: Spontaneous
  Country: JP (occurrence: JP)
  Receive Date: 20190405
  Receipt Date: 20190517
  Transmission Date: 20190711
  Serious: Yes (Other)
  Sender: FDA-Public Use
  Company Number: JP-AMGEN-JPNSP2019052574

PATIENT
  Age: 10 Decade
  Sex: Female

DRUGS (2)
  1. PRALIA [Suspect]
     Active Substance: DENOSUMAB
     Indication: OSTEOPOROSIS
     Dosage: 60 MILLIGRAM, Q6MO
     Route: 058
  2. EDIROL [Suspect]
     Active Substance: ELDECALCITOL
     Indication: OSTEOPOROSIS
     Dosage: 0.75 MICROGRAM, QD
     Route: 048

REACTIONS (1)
  - Renal impairment [Unknown]
